FAERS Safety Report 10424216 (Version 1)
Quarter: 2014Q3

REPORT INFORMATION
  Report Type: Spontaneous
  Country: US (occurrence: US)
  Receive Date: 20140902
  Receipt Date: 20140902
  Transmission Date: 20150326
  Serious: No
  Sender: FDA-Public Use
  Company Number: US-PFIZER INC-2014240556

PATIENT
  Sex: Female
  Weight: 48.53 kg

DRUGS (1)
  1. ADVIL [Suspect]
     Active Substance: IBUPROFEN
     Indication: MUSCULOSKELETAL CHEST PAIN
     Dosage: UNK, 1X/DAY (AT NIGHT BEFORE GOING TO BED)
     Route: 048

REACTIONS (3)
  - Salivary hypersecretion [Unknown]
  - Hyperhidrosis [Unknown]
  - Expired product administered [Unknown]

NARRATIVE: CASE EVENT DATE: 201408
